FAERS Safety Report 9722436 (Version 1)
Quarter: 2013Q4

REPORT INFORMATION
  Report Type: Spontaneous
  Country: US (occurrence: US)
  Receive Date: 20131202
  Receipt Date: 20131202
  Transmission Date: 20140711
  Serious: No
  Sender: FDA-Public Use
  Company Number: US-009507513-1311USA011635

PATIENT
  Age: 73 Year
  Sex: Female

DRUGS (4)
  1. JANUMET [Suspect]
     Indication: TYPE 2 DIABETES MELLITUS
     Dosage: 50MG/1000MG, TWICE DAILY
     Route: 048
     Dates: start: 201304
  2. JANUVIA [Suspect]
     Dosage: UNK
     Route: 048
     Dates: end: 201304
  3. METFORMIN [Concomitant]
     Dosage: UNK
     Dates: end: 201304
  4. NATEGLINIDE [Concomitant]
     Dosage: 1 TABLET PER DAY
     Route: 048

REACTIONS (1)
  - Blood glucose increased [Not Recovered/Not Resolved]
